FAERS Safety Report 23230196 (Version 1)
Quarter: 2023Q4

REPORT INFORMATION
  Report Type: Spontaneous
  Country: US (occurrence: None)
  Receive Date: 20231124
  Receipt Date: 20231124
  Transmission Date: 20240110
  Serious: Yes (Other)
  Sender: FDA-Public Use
  Company Number: None

PATIENT
  Age: 52 Year
  Sex: Male

DRUGS (12)
  1. NUCALA [Suspect]
     Active Substance: MEPOLIZUMAB
     Indication: Asthma
     Route: 058
     Dates: start: 20230121
  2. ADVAIR DISKU AER [Concomitant]
  3. ALBUTEROL [Concomitant]
  4. CETIRIZINE [Concomitant]
     Active Substance: CETIRIZINE HYDROCHLORIDE
  5. DILTIAZEM [Concomitant]
     Active Substance: DILTIAZEM
  6. FLECAINIDE [Concomitant]
     Active Substance: FLECAINIDE
  7. HYDRALZINE [Concomitant]
  8. IRBESAR/HCTZ [Concomitant]
  9. LASIX [Concomitant]
     Active Substance: FUROSEMIDE
  10. SINGULAIR [Concomitant]
  11. SPIRIVA SPR [Concomitant]
  12. XARELTO [Concomitant]
     Active Substance: RIVAROXABAN

REACTIONS (1)
  - Atrial fibrillation [None]

NARRATIVE: CASE EVENT DATE: 20231119
